FAERS Safety Report 4860049-1 (Version None)
Quarter: 2005Q4

REPORT INFORMATION
  Report Type: 
  Country: None (occurrence: None)
  Receive Date: 20051219
  Receipt Date: 20030814
  Transmission Date: 20060501
  Serious: Yes (Death, Hospitalization, Other)
  Sender: FDA-Public Use
  Company Number: US-MERCK-0308USA01519

PATIENT
  Age: 78 Year
  Sex: Female
  Weight: 77 kg

DRUGS (14)
  1. VIOXX [Suspect]
     Indication: PAIN
     Route: 048
     Dates: start: 20000306, end: 20001001
  2. VIOXX [Suspect]
     Route: 048
     Dates: start: 20001213, end: 20010330
  3. ZOLOFT [Concomitant]
     Route: 065
  4. MECLIZINE [Concomitant]
     Route: 065
  5. SYNTHROID [Concomitant]
     Route: 065
     Dates: start: 19981201
  6. LASIX [Concomitant]
     Route: 065
  7. PLAVIX [Concomitant]
     Route: 065
  8. GLYBURIDE [Concomitant]
     Route: 065
  9. CAPTOPRIL [Concomitant]
     Route: 065
  10. LORAZEPAM [Concomitant]
     Route: 065
  11. PEPCID AC [Concomitant]
     Route: 048
  12. PHENERGAN TABLETS/SUPPOSITORIES [Concomitant]
     Route: 065
  13. AMBIEN [Concomitant]
     Route: 065
  14. CELEBREX [Concomitant]
     Route: 065
     Dates: end: 20000501

REACTIONS (16)
  - CARDIAC ARREST [None]
  - CARDIAC FAILURE CONGESTIVE [None]
  - CHOLELITHIASIS [None]
  - CHRONIC OBSTRUCTIVE PULMONARY DISEASE [None]
  - CORONARY ARTERY DISEASE [None]
  - DIABETES MELLITUS INADEQUATE CONTROL [None]
  - DIZZINESS [None]
  - DYSPEPSIA [None]
  - FATIGUE [None]
  - GASTRITIS [None]
  - GASTROINTESTINAL HAEMORRHAGE [None]
  - HYPERKALAEMIA [None]
  - MICROCYTIC ANAEMIA [None]
  - MYOCARDIAL INFARCTION [None]
  - RENAL FAILURE [None]
  - VERTIGO POSITIONAL [None]
